FAERS Safety Report 25617612 (Version 1)
Quarter: 2025Q3

REPORT INFORMATION
  Report Type: Spontaneous
  Country: EU (occurrence: EU)
  Receive Date: 20250729
  Receipt Date: 20250729
  Transmission Date: 20251021
  Serious: Yes (Hospitalization, Other)
  Sender: SANOFI AVENTIS
  Company Number: None

PATIENT
  Age: 67 Year
  Sex: Male

DRUGS (2)
  1. OXALIPLATIN [Suspect]
     Active Substance: OXALIPLATIN
     Indication: Adenocarcinoma of colon
     Dosage: 1300 MG/M2 (EVERY 21 DAYS)
     Route: 042
     Dates: start: 20250411, end: 20250530
  2. CAPECITABINE [Suspect]
     Active Substance: CAPECITABINE
     Indication: Adenocarcinoma of colon
     Dosage: 1 G, Q12H (1,000 MG EVERY 12 HOURS)
     Route: 048
     Dates: start: 20250411, end: 20250616

REACTIONS (4)
  - Enteritis [Recovered/Resolved]
  - Neutropenia [Recovered/Resolved]
  - Thrombocytopenia [Recovered/Resolved]
  - Tinea pedis [Recovered/Resolved]

NARRATIVE: CASE EVENT DATE: 20250618
